FAERS Safety Report 10799052 (Version 1)
Quarter: 2015Q1

REPORT INFORMATION
  Report Type: Spontaneous
  Country: US (occurrence: US)
  Receive Date: 20150216
  Receipt Date: 20150216
  Transmission Date: 20150721
  Serious: No
  Sender: FDA-Public Use
  Company Number: US-ALLERGAN-1404992US

PATIENT
  Sex: Male

DRUGS (5)
  1. ARTIFICIAL TEARS                   /00445101/ [Concomitant]
     Indication: DRY EYE
     Dosage: UNK
  2. RESTASIS [Suspect]
     Active Substance: CYCLOSPORINE
     Indication: DRY EYE
     Dosage: 2 GTT, BID
     Route: 047
     Dates: start: 20140201, end: 20140310
  3. RESTASIS [Suspect]
     Active Substance: CYCLOSPORINE
     Indication: BLEPHARITIS
  4. AZOPT [Concomitant]
     Active Substance: BRINZOLAMIDE
     Dosage: UNK UNK, BID
  5. LUMIGAN [Concomitant]
     Active Substance: BIMATOPROST
     Indication: GLAUCOMA
     Dosage: UNK UNK, QHS

REACTIONS (8)
  - Vision blurred [Not Recovered/Not Resolved]
  - Dysphonia [Not Recovered/Not Resolved]
  - Swelling face [Not Recovered/Not Resolved]
  - Lip swelling [Not Recovered/Not Resolved]
  - Multiple use of single-use product [Unknown]
  - Eye pruritus [Not Recovered/Not Resolved]
  - Skin discolouration [Not Recovered/Not Resolved]
  - Rash [Not Recovered/Not Resolved]

NARRATIVE: CASE EVENT DATE: 20140307
